FAERS Safety Report 9795904 (Version 3)
Quarter: 2014Q2

REPORT INFORMATION
  Report Type: Spontaneous
  Country: US (occurrence: US)
  Receive Date: 20140103
  Receipt Date: 20140620
  Transmission Date: 20141212
  Serious: Yes (Death, Hospitalization)
  Sender: FDA-Public Use
  Company Number: US-NOVOPROD-396573

PATIENT
  Age: 68 Year
  Sex: Male
  Weight: 112.47 kg

DRUGS (7)
  1. VICTOZA [Suspect]
     Indication: TYPE 2 DIABETES MELLITUS
     Dosage: 1.8 MG DAILY
     Route: 058
     Dates: start: 20100422, end: 20130104
  2. BYETTA [Suspect]
     Indication: TYPE 2 DIABETES MELLITUS
     Dosage: 5 ?G, BID
     Route: 058
     Dates: start: 20070612, end: 20070628
  3. BYETTA [Suspect]
     Dosage: 10 ?G, BID
     Route: 058
     Dates: start: 20070629, end: 20080919
  4. JANUVIA [Suspect]
     Indication: TYPE 2 DIABETES MELLITUS
     Dosage: 100 MG, QD
     Route: 048
     Dates: start: 20061129, end: 20100422
  5. MULTIVITAMIN                       /00097801/ [Concomitant]
     Indication: NUTRITIONAL SUPPLEMENTATION
     Dosage: UNKNOWN
     Dates: end: 2013
  6. ADVIL                              /00044201/ [Concomitant]
     Indication: PAIN MANAGEMENT
     Dosage: UNKNOWN
     Dates: start: 200802, end: 2013
  7. FISH OIL [Concomitant]
     Indication: DYSLIPIDAEMIA
     Dosage: UNKNOWN
     Dates: start: 20080919, end: 2013

REACTIONS (1)
  - Pancreatic carcinoma [Fatal]
